FAERS Safety Report 6070775-7 (Version None)
Quarter: 2009Q1

REPORT INFORMATION
  Report Type: 
  Country: None (occurrence: None)
  Receive Date: 20090209
  Receipt Date: 20080825
  Transmission Date: 20090719
  Serious: No
  Sender: FDA-Public Use
  Company Number: A0627353A

PATIENT
  Sex: Female

DRUGS (2)
  1. PAXIL [Suspect]
     Indication: DRUG USE FOR UNKNOWN INDICATION
     Dosage: 40MG UNKNOWN
     Route: 048
  2. PAXIL CR [Suspect]
     Indication: DRUG USE FOR UNKNOWN INDICATION
     Route: 048

REACTIONS (3)
  - IRRITABILITY [None]
  - MYALGIA [None]
  - WEIGHT INCREASED [None]
